FAERS Safety Report 20917607 (Version 1)
Quarter: 2022Q2

REPORT INFORMATION
  Report Type: Report from Study
  Country: US (occurrence: US)
  Receive Date: 20220606
  Receipt Date: 20220606
  Transmission Date: 20220721
  Serious: Yes (Other)
  Sender: FDA-Public Use
  Company Number: US-BRISTOL-MYERS SQUIBB COMPANY-2022-016590

PATIENT
  Age: 31 Year
  Sex: Male
  Weight: 44.0 kg

DRUGS (3)
  1. ZEPOSIA [Suspect]
     Active Substance: OZANIMOD HYDROCHLORIDE
     Indication: Colitis ulcerative
     Route: 048
     Dates: start: 20220329
  2. ZEPOSIA [Suspect]
     Active Substance: OZANIMOD HYDROCHLORIDE
     Route: 048
     Dates: start: 20220329
  3. OXYCODONE [Suspect]
     Active Substance: OXYCODONE
     Indication: Colitis ulcerative
     Dosage: 3 TIMES A DAY

REACTIONS (2)
  - Chest discomfort [Unknown]
  - Hypopnoea [Unknown]
